FAERS Safety Report 9031010 (Version 1)
Quarter: 2013Q1

REPORT INFORMATION
  Report Type: Spontaneous
  Country: IT (occurrence: IT)
  Receive Date: 20130123
  Receipt Date: 20130123
  Transmission Date: 20140127
  Serious: Yes (Other)
  Sender: FDA-Public Use
  Company Number: PHHY2013IT005293

PATIENT
  Age: 42 Year
  Sex: Male

DRUGS (10)
  1. RIBAVIRIN [Suspect]
     Indication: HEPATIC CIRRHOSIS
     Dosage: 800 MG, UNK
     Dates: start: 2002
  2. RIBAVIRIN [Suspect]
     Dosage: 80 MG, UNK
     Dates: start: 2004
  3. RIBAVIRIN [Suspect]
     Dosage: 1000 MG, UNK
  4. RIBAVIRIN [Suspect]
     Dosage: 1200 MG, UNK
     Dates: start: 201003
  5. PEGINTERFERON ALFA-2B [Suspect]
     Indication: HEPATIC CIRRHOSIS
     Dosage: 100 UG, QW
     Dates: start: 2002
  6. PEGINTERFERON ALFA-2B [Suspect]
     Dosage: 180 UG, QW
     Dates: start: 2004
  7. PEGINTERFERON ALFA-2B [Suspect]
     Dosage: 180 UG, QW
  8. PEGINTERFERON ALFA-2B [Suspect]
     Dosage: 180 UG, QW
     Dates: start: 201003
  9. TACROLIMUS [Concomitant]
     Indication: IMMUNOSUPPRESSION
  10. MYCOPHENOLATE [Concomitant]
     Indication: IMMUNOSUPPRESSION

REACTIONS (10)
  - Porphyria non-acute [Recovered/Resolved]
  - Hepatitis C [Recovered/Resolved]
  - Anaemia [Recovered/Resolved]
  - Ascites [Recovered/Resolved]
  - Hepatic function abnormal [Recovered/Resolved]
  - Hypertransaminasaemia [Recovered/Resolved]
  - Hepatic steatosis [Recovered/Resolved]
  - Skin lesion [Recovered/Resolved]
  - Blister [Recovered/Resolved]
  - Skin erosion [Recovered/Resolved]
